FAERS Safety Report 23250057 (Version 1)
Quarter: 2023Q4

REPORT INFORMATION
  Report Type: Spontaneous
  Country: GB (occurrence: GB)
  Receive Date: 20231201
  Receipt Date: 20231201
  Transmission Date: 20240110
  Serious: Yes (Other)
  Sender: FDA-Public Use
  Company Number: None

PATIENT
  Age: 42 Year
  Sex: Female

DRUGS (3)
  1. CLARITHROMYCIN [Suspect]
     Active Substance: CLARITHROMYCIN
     Indication: Ear pain
     Dosage: 500 MG, BID
     Route: 065
     Dates: start: 20231123, end: 20231126
  2. IBUPROFEN [Concomitant]
     Active Substance: IBUPROFEN
     Indication: Analgesic therapy
     Dosage: UNK
     Route: 065
     Dates: start: 2023
  3. ACETAMINOPHEN [Concomitant]
     Active Substance: ACETAMINOPHEN
     Indication: Analgesic therapy
     Dosage: UNK
     Route: 065
     Dates: start: 2023

REACTIONS (5)
  - Ear pain [Not Recovered/Not Resolved]
  - Hypersensitivity [Unknown]
  - Ear discomfort [Unknown]
  - Odynophagia [Unknown]
  - Swelling face [Unknown]

NARRATIVE: CASE EVENT DATE: 20231123
